FAERS Safety Report 7054934-2 (Version None)
Quarter: 2010Q4

REPORT INFORMATION
  Report Type: 
  Country: None (occurrence: None)
  Receive Date: 20101021
  Receipt Date: 20101012
  Transmission Date: 20110411
  Serious: No
  Sender: FDA-Public Use
  Company Number: US-BIOGENIDEC-2010BI036028

PATIENT
  Age: 41 Year
  Sex: Female

DRUGS (4)
  1. TYSABRI [Suspect]
     Indication: MULTIPLE SCLEROSIS
     Route: 042
     Dates: start: 20050201, end: 20050201
  2. TYSABRI [Suspect]
     Route: 042
     Dates: start: 20081020
  3. AMPYRA [Concomitant]
     Indication: GAIT DISTURBANCE
     Dates: start: 20100501
  4. AMPYRA [Concomitant]
     Dates: start: 20100501

REACTIONS (1)
  - URINARY TRACT INFECTION [None]
